FAERS Safety Report 4936280-3 (Version None)
Quarter: 2006Q1

REPORT INFORMATION
  Report Type: 
  Country: None (occurrence: None)
  Receive Date: 20060127
  Receipt Date: 20051205
  Transmission Date: 20060701
  Serious: Yes (Other)
  Sender: FDA-Public Use
  Company Number: 2005140738

PATIENT
  Age: 27 Year
  Sex: Male
  Weight: 102.0593 kg

DRUGS (8)
  1. LYRICA [Suspect]
     Indication: DIABETIC NEUROPATHY
     Dosage: 150 MG (75 MG,2 IN 1 D)
     Dates: start: 20051004
  2. OXYCONTIN [Concomitant]
  3. ROXICODONE [Concomitant]
  4. ROBAXIN [Concomitant]
  5. ALBUTEROL [Concomitant]
  6. XANAX [Concomitant]
  7. KLONOPIN [Concomitant]
  8. NOVOLOG [Concomitant]

REACTIONS (1)
  - DRUG EFFECT DECREASED [None]
